FAERS Safety Report 16091305 (Version 1)
Quarter: 2019Q1

REPORT INFORMATION
  Report Type: Spontaneous
  Country: MX (occurrence: MX)
  Receive Date: 20190319
  Receipt Date: 20190319
  Transmission Date: 20190418
  Serious: Yes (Hospitalization, Other)
  Sender: FDA-Public Use
  Company Number: MX-BIOMARINAP-MX-2019-122510

PATIENT
  Age: 7 Year
  Sex: Female
  Weight: 16.5 kg

DRUGS (1)
  1. ALDURAZYME [Suspect]
     Active Substance: LARONIDASE
     Indication: MUCOPOLYSACCHARIDOSIS I
     Dosage: 3 DOSAGE FORM, QW
     Route: 041
     Dates: start: 20150930, end: 20190308

REACTIONS (5)
  - Device related infection [Not Recovered/Not Resolved]
  - Nausea [Recovered/Resolved]
  - Chills [Recovered/Resolved]
  - Pyrexia [Not Recovered/Not Resolved]
  - Injection site infection [Not Recovered/Not Resolved]

NARRATIVE: CASE EVENT DATE: 20190308
